FAERS Safety Report 8531918-6 (Version None)
Quarter: 2012Q3

REPORT INFORMATION
  Report Type: 
  Country: None (occurrence: None)
  Receive Date: 20120723
  Receipt Date: 20120719
  Transmission Date: 20120928
  Serious: Yes (Other)
  Sender: FDA-Public Use
  Company Number: US-BAYER-2012-073457

PATIENT
  Age: 59 Year
  Sex: Male

DRUGS (1)
  1. ULTRAVIST 150 [Suspect]
     Indication: COMPUTERISED TOMOGRAM
     Dosage: 150 ML, UNK
     Dates: start: 20120716, end: 20120716

REACTIONS (5)
  - HYPOTENSION [None]
  - LIP SWELLING [None]
  - SWELLING FACE [None]
  - HYPERSENSITIVITY [None]
  - CONSCIOUSNESS FLUCTUATING [None]
